FAERS Safety Report 7427564-8 (Version None)
Quarter: 2011Q2

REPORT INFORMATION
  Report Type: 
  Country: None (occurrence: None)
  Receive Date: 20110420
  Receipt Date: 20110412
  Transmission Date: 20111010
  Serious: Yes (Hospitalization, Other)
  Sender: FDA-Public Use
  Company Number: US-RB-015717-10

PATIENT
  Age: 68 Year
  Sex: Female

DRUGS (5)
  1. SUBOXONE [Suspect]
     Indication: DRUG DEPENDENCE
     Route: 060
     Dates: start: 20090501, end: 20090801
  2. PERCOCET [Suspect]
     Indication: PRODUCT USED FOR UNKNOWN INDICATION
     Dosage: DOSING INFORMATION UNKNOWN
     Route: 065
  3. SUBOXONE [Suspect]
     Indication: PRODUCT USED FOR UNKNOWN INDICATION
     Route: 060
     Dates: start: 20100601, end: 20110404
  4. SUBOXONE [Suspect]
     Indication: PRODUCT USED FOR UNKNOWN INDICATION
     Dosage: SUBLINGUAL FILM - DOSING INFORMATION UNKNOWN
     Route: 065
  5. SUBOXONE [Suspect]
     Indication: PAIN
     Route: 060
     Dates: start: 20091101, end: 20100601

REACTIONS (19)
  - INFLUENZA [None]
  - THROMBOSIS [None]
  - INSOMNIA [None]
  - OFF LABEL USE [None]
  - INGROWING NAIL [None]
  - GANGRENE [None]
  - OROPHARYNGEAL PAIN [None]
  - DRUG DEPENDENCE [None]
  - NAUSEA [None]
  - DEPRESSION [None]
  - PYREXIA [None]
  - SUBSTANCE ABUSE [None]
  - PAIN [None]
  - INFLAMMATION [None]
  - DEPRESSED MOOD [None]
  - CRYING [None]
  - ARTHRALGIA [None]
  - POOR PERIPHERAL CIRCULATION [None]
  - LIMB INJURY [None]
